FAERS Safety Report 9137739 (Version 3)
Quarter: 2013Q2

REPORT INFORMATION
  Report Type: Report from Study
  Country: US (occurrence: US)
  Receive Date: 20130304
  Receipt Date: 20130426
  Transmission Date: 20140414
  Serious: Yes (Other)
  Sender: FDA-Public Use
  Company Number: PHEH2013US005112

PATIENT
  Age: 46 Year
  Sex: Female
  Weight: 68.27 kg

DRUGS (2)
  1. GILENYA [Suspect]
     Indication: MULTIPLE SCLEROSIS
     Dosage: 0.5 MG, QD
     Route: 048
     Dates: start: 201105, end: 201206
  2. GILENYA [Suspect]
     Dosage: 0.5 MG, QD
     Route: 048
     Dates: start: 20130326

REACTIONS (5)
  - Hepatitis [Recovering/Resolving]
  - Hepatic enzyme increased [Unknown]
  - Urinary tract infection [Recovering/Resolving]
  - Malaise [Recovering/Resolving]
  - White blood cell count decreased [Recovering/Resolving]
